FAERS Safety Report 4459214-7 (Version None)
Quarter: 2004Q3

REPORT INFORMATION
  Report Type: 
  Country: None (occurrence: None)
  Receive Date: 20040920
  Receipt Date: 20040920
  Transmission Date: 20050211
  Serious: Yes (Life-Threatening)
  Sender: FDA-Public Use
  Company Number: None

PATIENT
  Age: 63 Year
  Sex: Male
  Weight: 67 kg

DRUGS (3)
  1. TEGASEROD [Suspect]
     Indication: CONSTIPATION
     Dosage: 6 MG BID PO
     Route: 048
     Dates: start: 20040426, end: 20040503
  2. WARFARIN SODIUM [Concomitant]
  3. DIGOXIN [Concomitant]

REACTIONS (4)
  - ANXIETY [None]
  - MENTAL STATUS CHANGES [None]
  - MOVEMENT DISORDER [None]
  - RESTLESSNESS [None]
